FAERS Safety Report 18517190 (Version 2)
Quarter: 2020Q4

REPORT INFORMATION
  Report Type: Spontaneous
  Country: RU (occurrence: RU)
  Receive Date: 20201118
  Receipt Date: 20201202
  Transmission Date: 20210114
  Serious: Yes (Death, Life-Threatening, Hospitalization, Other)
  Sender: FDA-Public Use
  Company Number: RU-PFIZER INC-2020454486

PATIENT
  Age: 56 Year
  Sex: Female
  Weight: 115 kg

DRUGS (4)
  1. AZITHROMYCIN ANHYDROUS. [Concomitant]
     Active Substance: AZITHROMYCIN ANHYDROUS
     Indication: COVID-19 PNEUMONIA
     Dosage: 500 MG, 1X/DAY
     Dates: start: 20200521, end: 20200525
  2. KALETRA [Concomitant]
     Active Substance: LOPINAVIR\RITONAVIR
     Indication: COVID-19 PNEUMONIA
     Dosage: 400/100 MG, 1X/DAY
     Dates: start: 20200520, end: 20200604
  3. TOFACITINIB CITRATE [Suspect]
     Active Substance: TOFACITINIB CITRATE
     Indication: COVID-19 PNEUMONIA
     Dosage: 5 MG, 2X/DAY
     Route: 048
     Dates: start: 20200530, end: 20200530
  4. METHYLPREDNISOLONE. [Concomitant]
     Active Substance: METHYLPREDNISOLONE
     Indication: COVID-19 PNEUMONIA
     Dosage: 500 MG, 1X/DAY
     Dates: start: 20200525, end: 20200527

REACTIONS (2)
  - COVID-19 pneumonia [Fatal]
  - Off label use [Unknown]

NARRATIVE: CASE EVENT DATE: 20200530
